FAERS Safety Report 10186946 (Version 1)
Quarter: 2014Q2

REPORT INFORMATION
  Report Type: Spontaneous
  Country: US (occurrence: US)
  Receive Date: 20140522
  Receipt Date: 20140522
  Transmission Date: 20141212
  Serious: No
  Sender: FDA-Public Use
  Company Number: US-BIOGENIDEC-2014BI046865

PATIENT
  Sex: Female

DRUGS (2)
  1. TYSABRI [Suspect]
     Indication: RELAPSING-REMITTING MULTIPLE SCLEROSIS
     Route: 042
     Dates: start: 201309, end: 201403
  2. AVAPRO [Concomitant]
     Indication: BLOOD PRESSURE INCREASED
     Dates: start: 2006

REACTIONS (6)
  - Pollakiuria [Not Recovered/Not Resolved]
  - Vein disorder [Unknown]
  - Weight decreased [Recovered/Resolved]
  - Temperature intolerance [Not Recovered/Not Resolved]
  - Gastrointestinal disorder [Unknown]
  - Blood pressure increased [Not Recovered/Not Resolved]
